FAERS Safety Report 6039487-X (Version None)
Quarter: 2009Q1

REPORT INFORMATION
  Report Type: 
  Country: None (occurrence: None)
  Receive Date: 20090114
  Receipt Date: 20090107
  Transmission Date: 20090719
  Serious: Yes (Other)
  Sender: FDA-Public Use
  Company Number: CHPA2009US00506

PATIENT
  Age: 28 Year
  Sex: Male

DRUGS (1)
  1. GAS-X EXTRA STRENGTH SOFTGELS (SIMETHICONE) [Suspect]
     Dosage: ORAL
     Route: 048
     Dates: end: 20090106

REACTIONS (2)
  - DYSPNOEA [None]
  - HYPOAESTHESIA [None]
